FAERS Safety Report 6468838-7 (Version None)
Quarter: 2009Q4

REPORT INFORMATION
  Report Type: 
  Country: None (occurrence: None)
  Receive Date: 20091203
  Receipt Date: 20080709
  Transmission Date: 20100525
  Serious: Yes (Hospitalization, Other)
  Sender: FDA-Public Use
  Company Number: IT-ELI_LILLY_AND_COMPANY-EWC041040948

PATIENT
  Sex: Female
  Weight: 60 kg

DRUGS (3)
  1. ZYPREXA [Suspect]
     Indication: BIPOLAR DISORDER
     Dosage: 10 MG, DAILY (1/D)
     Route: 048
     Dates: start: 20031101, end: 20040923
  2. LORAZEPAM [Concomitant]
     Indication: BIPOLAR DISORDER
     Dosage: 7.5 MG, DAILY (1/D)
     Route: 048
     Dates: start: 20031101, end: 20040923
  3. CLOTIAPINE [Concomitant]
     Indication: BIPOLAR DISORDER
     Dosage: 19 MG, DAILY (1/D)
     Route: 048
     Dates: start: 20031101, end: 20040701

REACTIONS (11)
  - BLOOD CREATINE PHOSPHOKINASE INCREASED [None]
  - FEMUR FRACTURE [None]
  - HYPERHIDROSIS [None]
  - LEUKOCYTOSIS [None]
  - MUCOSAL DRYNESS [None]
  - MUSCLE RIGIDITY [None]
  - NEUROLEPTIC MALIGNANT SYNDROME [None]
  - PYREXIA [None]
  - RHABDOMYOLYSIS [None]
  - SPINAL CORD DISORDER [None]
  - TREMOR [None]
